FAERS Safety Report 15384056 (Version 1)
Quarter: 2018Q3

REPORT INFORMATION
  Report Type: Spontaneous
  Country: GB (occurrence: GB)
  Receive Date: 20180914
  Receipt Date: 20180914
  Transmission Date: 20181010
  Serious: Yes (Other)
  Sender: FDA-Public Use
  Company Number: GB-009507513-1809GBR002292

PATIENT
  Age: 51 Year
  Sex: Male
  Weight: 78 kg

DRUGS (4)
  1. FLUTICASONE FUROATE [Concomitant]
     Active Substance: FLUTICASONE FUROATE
     Dosage: SPRAYS, ONCE DROPS HAVE FINISHED
     Dates: start: 20161109
  2. LISINOPRIL. [Suspect]
     Active Substance: LISINOPRIL
     Dosage: 5 MG, QD
     Dates: start: 20180719
  3. ATORVASTATIN [Concomitant]
     Active Substance: ATORVASTATIN
     Dosage: 1 DF, QD
     Dates: start: 20180215
  4. CANDESARTAN. [Concomitant]
     Active Substance: CANDESARTAN
     Dosage: 1 DF, QD
     Dates: start: 20180817

REACTIONS (2)
  - Hypoaesthesia [Unknown]
  - Paraesthesia [Unknown]

NARRATIVE: CASE EVENT DATE: 20180817
